FAERS Safety Report 19507343 (Version 1)
Quarter: 2021Q3

REPORT INFORMATION
  Report Type: Spontaneous
  Country: DE (occurrence: DE)
  Receive Date: 20210708
  Receipt Date: 20210708
  Transmission Date: 20211014
  Serious: Yes (Hospitalization, Other)
  Sender: FDA-Public Use
  Company Number: DE-TEVA-2021-DE-1929610

PATIENT
  Age: 79 Year
  Sex: Female
  Weight: 54 kg

DRUGS (6)
  1. GLIMEPIRID [Suspect]
     Active Substance: GLIMEPIRIDE
     Dosage: 1 MILLIGRAM DAILY;   1?0?0?0,
     Route: 048
  2. TELMISARTAN. [Concomitant]
     Active Substance: TELMISARTAN
     Dosage: 80 MILLIGRAM DAILY;  1?0?0?0,
     Route: 048
  3. METOPROLOL. [Concomitant]
     Active Substance: METOPROLOL
     Dosage: 100 MILLIGRAM DAILY;  1?0?1?0,
     Route: 048
  4. LERCANIDIPIN [Concomitant]
     Active Substance: LERCANIDIPINE
     Dosage: 20 MILLIGRAM DAILY;   1?0?1?0
     Route: 048
  5. SITAGLIPTIN [Concomitant]
     Active Substance: SITAGLIPTIN
     Dosage: 100 MILLIGRAM DAILY;  1?0?0?0,
     Route: 048
  6. INSULIN GLARGIN [Concomitant]
     Active Substance: INSULIN GLARGINE
     Dosage: 14 IU (INTERNATIONAL UNIT) DAILY; 1 IU, 14?0?0?0, PRE?FILLED SYRINGES
     Route: 058

REACTIONS (5)
  - Vomiting [Unknown]
  - Abdominal pain [Unknown]
  - Liver function test abnormal [Unknown]
  - Diarrhoea [Unknown]
  - Bile duct stone [Unknown]
